FAERS Safety Report 23876785 (Version 2)
Quarter: 2024Q2

REPORT INFORMATION
  Report Type: Spontaneous
  Country: NO (occurrence: NO)
  Receive Date: 20240521
  Receipt Date: 20240601
  Transmission Date: 20240716
  Serious: Yes (Other)
  Sender: FDA-Public Use
  Company Number: NO-AMGEN-NORSP2024097070

PATIENT

DRUGS (3)
  1. PROLIA [Suspect]
     Active Substance: DENOSUMAB
     Indication: Product used for unknown indication
     Dosage: 60 MILLIGRAM (AT 6 AND 12 MONTHS)
     Route: 065
  2. PROLIA [Suspect]
     Active Substance: DENOSUMAB
     Dosage: 30 MILLIGRAM, TAPERED DOSE (AT BASELINE)
     Route: 065
  3. PROLIA [Suspect]
     Active Substance: DENOSUMAB
     Dosage: 15 MILLIGRAM, TAPERED DOSE (AT 6 MONTHS)
     Route: 065

REACTIONS (2)
  - Renal failure [Unknown]
  - Dental care [Unknown]
